FAERS Safety Report 9271914 (Version 2)
Quarter: 2013Q3

REPORT INFORMATION
  Report Type: Spontaneous
  Country: IT (occurrence: IT)
  Receive Date: 20130506
  Receipt Date: 20130725
  Transmission Date: 20140515
  Serious: Yes (Hospitalization)
  Sender: FDA-Public Use
  Company Number: IT-PFIZER INC-2013135892

PATIENT
  Age: 91 Year
  Sex: Female

DRUGS (2)
  1. FRONTAL [Suspect]
     Dosage: 20 DROPS
     Dates: start: 20130226, end: 20130226
  2. FRONTAL [Suspect]
     Dosage: (5 DROPS DAILY)

REACTIONS (3)
  - Drug abuse [Recovered/Resolved]
  - Toxicity to various agents [Recovered/Resolved]
  - Blood pressure increased [Unknown]
